FAERS Safety Report 8881649 (Version 4)
Quarter: 2013Q2

REPORT INFORMATION
  Report Type: Spontaneous
  Country: HR (occurrence: HR)
  Receive Date: 20121102
  Receipt Date: 20130418
  Transmission Date: 20140414
  Serious: Yes (Hospitalization, Other)
  Sender: FDA-Public Use
  Company Number: HR-JNJFOC-20121012886

PATIENT
  Age: 43 Year
  Sex: Male

DRUGS (13)
  1. RISPOLEPT CONSTA [Suspect]
     Indication: MENTAL DISORDER
     Route: 030
     Dates: start: 200710
  2. RISPOLEPT CONSTA [Suspect]
     Indication: PERSONALITY DISORDER
     Route: 030
     Dates: start: 200710
  3. RISPOLEPT CONSTA [Suspect]
     Indication: DELUSIONAL DISORDER, UNSPECIFIED TYPE
     Route: 030
     Dates: start: 200710
  4. PRAZINE [Suspect]
     Indication: PRODUCT USED FOR UNKNOWN INDICATION
     Dosage: 1,1,2
     Route: 065
  5. PRAZINE [Suspect]
     Indication: PRODUCT USED FOR UNKNOWN INDICATION
     Route: 065
  6. DEPAKINE CHRONO [Suspect]
     Indication: PRODUCT USED FOR UNKNOWN INDICATION
     Dosage: 0,0,2; 1,0,2; 1,1,2
     Route: 065
  7. LAMEPTIL [Suspect]
     Indication: PRODUCT USED FOR UNKNOWN INDICATION
     Dosage: 1,0,1
     Route: 065
  8. MIRZATEN [Suspect]
     Indication: PRODUCT USED FOR UNKNOWN INDICATION
     Dosage: 0,0,1
     Route: 065
  9. APAURIN [Suspect]
     Indication: PRODUCT USED FOR UNKNOWN INDICATION
     Dosage: 1,1,1
     Route: 065
  10. QUETIAPINE [Suspect]
     Indication: PRODUCT USED FOR UNKNOWN INDICATION
     Dosage: 1,1,2
     Route: 065
  11. ZOLOFT [Suspect]
     Indication: PRODUCT USED FOR UNKNOWN INDICATION
     Dosage: 2,0,0
     Route: 065
  12. FLURAZEPAM [Suspect]
     Indication: PRODUCT USED FOR UNKNOWN INDICATION
     Dosage: 0,0,1
     Route: 065
  13. PRAZINE [Suspect]
     Indication: PRODUCT USED FOR UNKNOWN INDICATION
     Dosage: 0,0,1
     Route: 065

REACTIONS (15)
  - Mental disorder [Recovering/Resolving]
  - Suicide attempt [Recovering/Resolving]
  - Post-traumatic stress disorder [Recovering/Resolving]
  - Delusion [Recovering/Resolving]
  - Delusional disorder, unspecified type [Recovering/Resolving]
  - Depression [Recovering/Resolving]
  - Psychotic disorder [Recovering/Resolving]
  - Personality disorder [Recovering/Resolving]
  - Dysphoria [Recovering/Resolving]
  - Insomnia [Recovering/Resolving]
  - Impulsive behaviour [Recovering/Resolving]
  - Aggression [Recovering/Resolving]
  - Abnormal behaviour [Recovering/Resolving]
  - Mental disorder [Recovering/Resolving]
  - Frustration [Recovering/Resolving]
